FAERS Safety Report 4441965-1 (Version None)
Quarter: 2004Q3

REPORT INFORMATION
  Report Type: 
  Country: None (occurrence: None)
  Receive Date: 20040907
  Receipt Date: 20040624
  Transmission Date: 20050211
  Serious: Yes (Hospitalization)
  Sender: FDA-Public Use
  Company Number: CH-GLAXOSMITHKLINE-B0337597A

PATIENT
  Age: 39 Year
  Sex: Female

DRUGS (6)
  1. AUGMENTIN [Suspect]
     Indication: INFECTION
     Route: 048
     Dates: start: 20040521, end: 20040524
  2. VOLTAREN [Suspect]
     Indication: PAIN
     Route: 048
     Dates: start: 20040521, end: 20040524
  3. DALACIN C [Suspect]
     Indication: INFECTION
     Route: 042
     Dates: start: 20040524, end: 20040525
  4. BRUFEN [Suspect]
     Indication: PAIN
     Dosage: 400MG THREE TIMES PER DAY
     Route: 048
     Dates: start: 20040524, end: 20040525
  5. TRAMAL [Concomitant]
     Indication: PAIN
     Dosage: 15MG TWICE PER DAY
     Route: 048
     Dates: start: 20040524, end: 20040525
  6. ACETAMINOPHEN [Concomitant]
     Indication: PAIN
     Dosage: 1G FOUR TIMES PER DAY
     Route: 048
     Dates: start: 20040524, end: 20040525

REACTIONS (5)
  - CONJUNCTIVAL HYPERAEMIA [None]
  - PAIN [None]
  - PRURITUS [None]
  - RASH [None]
  - RASH MACULO-PAPULAR [None]
